FAERS Safety Report 6150859-5 (Version None)
Quarter: 2009Q2

REPORT INFORMATION
  Report Type: 
  Country: None (occurrence: None)
  Receive Date: 20090408
  Receipt Date: 20090324
  Transmission Date: 20091009
  Serious: Yes (Disabling, Other)
  Sender: FDA-Public Use
  Company Number: 2009S1005348

PATIENT
  Sex: Male

DRUGS (2)
  1. MIRTAZAPINE [Suspect]
  2. ASMANEX TWISTHALER [Suspect]

REACTIONS (2)
  - BLINDNESS UNILATERAL [None]
  - RASH ERYTHEMATOUS [None]
